FAERS Safety Report 4947162-5 (Version None)
Quarter: 2006Q1

REPORT INFORMATION
  Report Type: 
  Country: None (occurrence: None)
  Receive Date: 20060317
  Receipt Date: 20060307
  Transmission Date: 20060701
  Serious: Yes (Hospitalization)
  Sender: FDA-Public Use
  Company Number: US-SANOFI-SYNTHELABO-A03200601224

PATIENT
  Sex: Female

DRUGS (3)
  1. PLAVIX [Suspect]
     Indication: THROMBOSIS
     Route: 048
  2. ADVAIR DISKUS 100/50 [Concomitant]
     Dosage: UNK
     Route: 065
     Dates: start: 20040101
  3. XANAX [Concomitant]
     Route: 048
     Dates: start: 19960101

REACTIONS (3)
  - DYSPNOEA [None]
  - MENTAL DISORDER [None]
  - MYOCARDIAL INFARCTION [None]
